FAERS Safety Report 6299833-9 (Version None)
Quarter: 2009Q3

REPORT INFORMATION
  Report Type: 
  Country: None (occurrence: None)
  Receive Date: 20090806
  Receipt Date: 20090729
  Transmission Date: 20100115
  Serious: Yes (Other)
  Sender: FDA-Public Use
  Company Number: US-PURDUE-USA-2009-0038693

PATIENT
  Sex: Male

DRUGS (7)
  1. OXYCONTIN [Suspect]
     Indication: PAIN
     Dosage: 20 MG, Q12H
     Dates: start: 20021008, end: 20021108
  2. TYLENOL W/ CODEINE NO. 3 [Concomitant]
  3. NAPROXEN [Concomitant]
     Dosage: 500 MG, UNK
  4. RHINOCORT                          /00614601/ [Concomitant]
  5. GABAPENTIN [Concomitant]
     Dosage: 300 MG, UNK
  6. RANITIDINE [Concomitant]
     Dosage: 150 MG, UNK
  7. SERTRALINE HYDROCHLORIDE [Concomitant]
     Dosage: 100 MG, UNK

REACTIONS (3)
  - DEPRESSION [None]
  - OVERDOSE [None]
  - SUICIDAL IDEATION [None]
